FAERS Safety Report 12419533 (Version 2)
Quarter: 2017Q4

REPORT INFORMATION
  Report Type: Spontaneous
  Country: JP (occurrence: JP)
  Receive Date: 20160531
  Receipt Date: 20171205
  Transmission Date: 20180320
  Serious: Yes (Hospitalization, Other)
  Sender: FDA-Public Use
  Company Number: JP-PFIZER INC-2016274686

PATIENT
  Age: 76 Year
  Sex: Female

DRUGS (1)
  1. METHOTREXATE SODIUM. [Suspect]
     Active Substance: METHOTREXATE SODIUM
     Indication: RHEUMATOID ARTHRITIS
     Dosage: 8 MG, WEEKLY
     Route: 048
     Dates: start: 201110

REACTIONS (4)
  - Overdose [Unknown]
  - Bone marrow failure [Recovered/Resolved]
  - Mucous membrane disorder [Recovered/Resolved]
  - Skin disorder [Recovered/Resolved]

NARRATIVE: CASE EVENT DATE: 20150410
